FAERS Safety Report 17425403 (Version 1)
Quarter: 2020Q1

REPORT INFORMATION
  Report Type: Spontaneous
  Country: US (occurrence: US)
  Receive Date: 20200217
  Receipt Date: 20200217
  Transmission Date: 20200409
  Serious: Yes (Life-Threatening, Hospitalization)
  Sender: FDA-Public Use
  Company Number: US-MYLANLABS-2018M1042168

PATIENT
  Age: 72 Year
  Sex: Female

DRUGS (1)
  1. VERAPAMIL [Suspect]
     Active Substance: VERAPAMIL HYDROCHLORIDE
     Indication: VASOSPASM
     Dosage: STARTED AT 40 MG IN THE FLUSHING BAG; TOTAL DOSE ADMINISTERED 90 MG
     Route: 013

REACTIONS (3)
  - Pulmonary oedema [Unknown]
  - Hypoxia [Unknown]
  - Procedural hypotension [Unknown]
